FAERS Safety Report 22664156 (Version 2)
Quarter: 2023Q4

REPORT INFORMATION
  Report Type: Spontaneous
  Country: US (occurrence: US)
  Receive Date: 20230703
  Receipt Date: 20231004
  Transmission Date: 20240110
  Serious: No
  Sender: FDA-Public Use
  Company Number: US-BRISTOL-MYERS SQUIBB COMPANY-2023-090115

PATIENT
  Age: 67 Year
  Sex: Male
  Weight: 97.52 kg

DRUGS (3)
  1. OPDIVO [Suspect]
     Active Substance: NIVOLUMAB
     Indication: Pleural mesothelioma
     Dosage: DOSE : 1;     FREQ : EVERY 3 WEEKS
     Route: 042
     Dates: start: 20230615
  2. YERVOY [Suspect]
     Active Substance: IPILIMUMAB
     Indication: Pleural mesothelioma
     Dosage: DOSE : 1; FREQ : EVERY 3 WEEKS
     Route: 042
     Dates: start: 20230615
  3. LIPITOR [Concomitant]
     Active Substance: ATORVASTATIN CALCIUM
     Indication: Product used for unknown indication

REACTIONS (7)
  - Influenza [Unknown]
  - Headache [Unknown]
  - Pain [Unknown]
  - Fatigue [Unknown]
  - Poor quality sleep [Unknown]
  - Pulmonary pain [Unknown]
  - Off label use [Unknown]

NARRATIVE: CASE EVENT DATE: 20230615
